FAERS Safety Report 5179460-7 (Version None)
Quarter: 2006Q4

REPORT INFORMATION
  Report Type: 
  Country: None (occurrence: None)
  Receive Date: 20061219
  Receipt Date: 20061204
  Transmission Date: 20070319
  Serious: Yes (Other)
  Sender: FDA-Public Use
  Company Number: SG-BRISTOL-MYERS SQUIBB COMPANY-13605605

PATIENT
  Age: 97 Year
  Sex: Female

DRUGS (5)
  1. CEFEPIME [Suspect]
  2. AUGMENTIN '125' [Suspect]
  3. ERYTHROMYCIN [Suspect]
  4. CIPROFLOXACIN [Suspect]
     Indication: URINARY TRACT INFECTION
  5. PIPERACILLIN AND TAZOBACTAM [Suspect]

REACTIONS (1)
  - TUBERCULOSIS [None]
